FAERS Safety Report 5656251-1 (Version None)
Quarter: 2008Q1

REPORT INFORMATION
  Report Type: 
  Country: None (occurrence: None)
  Receive Date: 20080305
  Receipt Date: 20080225
  Transmission Date: 20080703
  Serious: Yes (Hospitalization, Other)
  Sender: FDA-Public Use
  Company Number: 2008AL001085

PATIENT
  Age: 60 Year
  Sex: Male
  Weight: 74 kg

DRUGS (2)
  1. BACLOFEN [Suspect]
     Indication: MUSCLE SPASMS
     Dosage: 25 MG; Q12H
  2. INSULIN [Concomitant]

REACTIONS (13)
  - BLOOD PRESSURE SYSTOLIC INCREASED [None]
  - COMA [None]
  - DIALYSIS [None]
  - DRUG TOXICITY [None]
  - HAEMODIALYSIS [None]
  - HYPOTENSION [None]
  - HYPOTONIA [None]
  - HYPOVENTILATION [None]
  - MUSCLE SPASMS [None]
  - OVERDOSE [None]
  - PNEUMONIA [None]
  - RENAL FAILURE [None]
  - RENAL FAILURE ACUTE [None]
